FAERS Safety Report 7010355-X (Version None)
Quarter: 2010Q3

REPORT INFORMATION
  Report Type: 
  Country: None (occurrence: None)
  Receive Date: 20100923
  Receipt Date: 20100922
  Transmission Date: 20110219
  Serious: Yes (Life-Threatening, Other)
  Sender: FDA-Public Use
  Company Number: KR-ROXANE LABORATORIES, INC.-2010-RO-01258RO

PATIENT
  Age: 35 Year
  Sex: Male
  Weight: 70 kg

DRUGS (10)
  1. LIDOCAINE [Suspect]
     Indication: ANAESTHESIA
     Dosage: 7.5 ML
  2. LIDOCAINE [Suspect]
     Indication: RESUSCITATION
     Dosage: 50 MG
     Route: 042
  3. LIDOCAINE [Suspect]
     Indication: ELECTROCARDIOGRAM ABNORMAL
     Dosage: 80 MG
     Route: 042
  4. DESFLURANE [Suspect]
     Indication: MAINTENANCE OF ANAESTHESIA
  5. REMIFENTANIL [Suspect]
     Indication: MAINTENANCE OF ANAESTHESIA
  6. EPINEPHRINE [Suspect]
     Indication: ANAESTHESIA
  7. EPINEPHRINE [Suspect]
     Indication: RESUSCITATION
     Dosage: 0.5 MG
     Route: 042
  8. ISOSORBIDE DINITRATE [Suspect]
     Indication: ELECTROCARDIOGRAM ABNORMAL
     Route: 042
  9. MAGNESIUM SULFATE [Suspect]
     Indication: RESUSCITATION
     Dosage: 1 G
     Route: 042
  10. ACETYLCHOLINE CHLORIDE [Suspect]
     Indication: DIAGNOSTIC PROCEDURE
     Dosage: 50 MCG

REACTIONS (12)
  - ARTERIOSPASM CORONARY [None]
  - BLOOD PRESSURE INCREASED [None]
  - CARDIAC ARREST [None]
  - CARDIAC ENZYMES INCREASED [None]
  - ELECTROCARDIOGRAM QRS COMPLEX PROLONGED [None]
  - ELECTROCARDIOGRAM ST SEGMENT ELEVATION [None]
  - ELECTROCARDIOGRAM T WAVE INVERSION [None]
  - HEART RATE INCREASED [None]
  - PRINZMETAL ANGINA [None]
  - PULMONARY OEDEMA [None]
  - VENTRICULAR EXTRASYSTOLES [None]
  - VENTRICULAR TACHYCARDIA [None]
